FAERS Safety Report 7078306-X (Version None)
Quarter: 2010Q4

REPORT INFORMATION
  Report Type: 
  Country: None (occurrence: None)
  Receive Date: 20101102
  Receipt Date: 20101020
  Transmission Date: 20110411
  Serious: Yes (Other)
  Sender: FDA-Public Use
  Company Number: US-ELI_LILLY_AND_COMPANY-US201008003668

PATIENT
  Sex: Female
  Weight: 82.993 kg

DRUGS (16)
  1. FORTEO [Suspect]
     Indication: OSTEOPOROSIS
     Dosage: 20 UG, DAILY (1/D)
     Route: 058
     Dates: start: 20091013, end: 20100809
  2. SYNTHROID [Concomitant]
     Dosage: 88 UG, DAILY (1/D)
     Route: 065
  3. WARFARIN [Concomitant]
     Indication: ANTICOAGULANT THERAPY
     Dosage: 5 MG, 5/W
     Route: 065
  4. SIMVASTATIN [Concomitant]
     Dosage: 20 MG, DAILY (1/D)
     Route: 065
  5. METOPROLOL [Concomitant]
     Dosage: 100 MG, EACH MORNING
     Route: 065
  6. METOPROLOL [Concomitant]
     Dosage: 50 MG, AT NIGHT
     Route: 065
  7. MAXZIDE [Concomitant]
     Indication: DIURETIC THERAPY
     Dosage: 0.5 D/F, DAILY (1/D)
     Route: 065
  8. VITAMIN D [Concomitant]
     Dosage: 10000 U, DAILY (1/D)
     Route: 065
  9. VITAMIN B3 [Concomitant]
     Dosage: UNK, UNKNOWN
     Route: 065
  10. CITRACAL [Concomitant]
     Dosage: 2 D/F, EACH MORNING
     Route: 065
  11. CITRACAL [Concomitant]
     Dosage: 2 D/F, NIGHT
     Route: 065
  12. CENTRUM [Concomitant]
     Dosage: UNK, UNKNOWN
     Route: 065
  13. VITAMINS [Concomitant]
     Dosage: UNK, UNKNOWN
     Route: 065
  14. CALCIUM [Concomitant]
  15. OMEPRAZOLE [Concomitant]
  16. TRIAMTERENE AND HYDROCHLOROTHIAZIDE [Concomitant]

REACTIONS (3)
  - BLOOD ALKALINE PHOSPHATASE INCREASED [None]
  - HYPERCALCAEMIA [None]
  - OSTEITIS DEFORMANS [None]
